FAERS Safety Report 9602826 (Version 1)
Quarter: 2013Q4

REPORT INFORMATION
  Report Type: Spontaneous
  Country: US (occurrence: US)
  Receive Date: 20131007
  Receipt Date: 20131007
  Transmission Date: 20140711
  Serious: Yes (Hospitalization)
  Sender: FDA-Public Use
  Company Number: US-B.I. PHARMACEUTICALS,INC./RIDGEFIELD-2013-BI-31113BP

PATIENT
  Sex: Female

DRUGS (2)
  1. TRADJENTA [Suspect]
  2. INSULIN [Concomitant]

REACTIONS (1)
  - Pancreatitis [Recovered/Resolved]
